FAERS Safety Report 12210861 (Version 1)
Quarter: 2016Q1

REPORT INFORMATION
  Report Type: Spontaneous
  Country: GB (occurrence: GB)
  Receive Date: 20160325
  Receipt Date: 20160325
  Transmission Date: 20160526
  Serious: Yes (Other)
  Sender: FDA-Public Use
  Company Number: GB-TEVA-645327ACC

PATIENT
  Age: 78 Year
  Sex: Female
  Weight: 83 kg

DRUGS (10)
  1. ATORVASTATIN [Concomitant]
     Active Substance: ATORVASTATIN
     Dosage: 1 DOSAGE FORMS DAILY;
     Dates: start: 20160114
  2. COCODAMOL [Concomitant]
     Active Substance: ACETAMINOPHEN\CODEINE PHOSPHATE
     Dosage: TAKE 1OR 2, 4 TIMES/DAY
     Dates: start: 20130326
  3. FLUCLOXACILLIN [Concomitant]
     Active Substance: FLUCLOXACILLIN
     Dosage: 4 DOSAGE FORMS DAILY;
     Dates: start: 20160114, end: 20160121
  4. SALBUTAMOL [Concomitant]
     Active Substance: ALBUTEROL
     Route: 055
     Dates: start: 20150915
  5. UNIPHYLLIN [Concomitant]
     Active Substance: THEOPHYLLINE ANHYDROUS
     Dosage: 2 DOSAGE FORMS DAILY;
     Dates: start: 20160125, end: 20160222
  6. CALCICHEW D3 [Concomitant]
     Active Substance: CALCIUM\CHOLECALCIFEROL
     Dosage: 2 DOSAGE FORMS DAILY;
     Dates: start: 20141120
  7. AMLODIPINE [Concomitant]
     Active Substance: AMLODIPINE BESYLATE
     Dosage: 1 DOSAGE FORMS DAILY;
     Dates: start: 20150915
  8. CETOMACROGOL [Concomitant]
     Active Substance: COSMETICS
     Dosage: APPLY AS DIRECTED
     Dates: start: 20151222, end: 20160119
  9. SYMBICORT [Concomitant]
     Active Substance: BUDESONIDE\FORMOTEROL FUMARATE DIHYDRATE
     Dosage: 4 DOSAGE FORMS DAILY; REDUCE TO 1 PUFF TWICE A DAY; DAILY DOSE: 4DOSAGE FORMS
     Dates: start: 20150915
  10. METFORMIN [Suspect]
     Active Substance: METFORMIN HYDROCHLORIDE
     Dates: start: 20160223

REACTIONS (3)
  - Rash generalised [Recovered/Resolved]
  - Erythema [Recovered/Resolved]
  - Pruritus [Recovered/Resolved]
